FAERS Safety Report 16379577 (Version 1)
Quarter: 2019Q2

REPORT INFORMATION
  Report Type: Spontaneous
  Country: US (occurrence: US)
  Receive Date: 20190424
  Receipt Date: 20190424
  Transmission Date: 20190711
  Serious: Yes (Hospitalization)
  Sender: FDA-Public Use
  Company Number: None

PATIENT
  Age: 93 Year
  Sex: Female

DRUGS (7)
  1. SILDENAFIL. [Suspect]
     Active Substance: SILDENAFIL
     Indication: PULMONARY ARTERIAL HYPERTENSION
     Route: 048
  2. SENNA [Concomitant]
     Active Substance: SENNA LEAF\SENNOSIDES\SENNOSIDES A AND B
     Dates: start: 20190307
  3. CALCIUM CARB [Concomitant]
     Active Substance: CALCIUM CARBONATE
     Dates: start: 20190307
  4. GABAPENTIN. [Concomitant]
     Active Substance: GABAPENTIN
     Dates: start: 20190406
  5. LIDOCAINE. [Concomitant]
     Active Substance: LIDOCAINE
     Dates: start: 20190307
  6. DOK CAP [Concomitant]
     Dates: start: 20190307
  7. ACETAMINOPHEN. [Concomitant]
     Active Substance: ACETAMINOPHEN
     Dates: start: 20190307

REACTIONS (1)
  - Hip fracture [None]

NARRATIVE: CASE EVENT DATE: 20190226
